FAERS Safety Report 16074169 (Version 1)
Quarter: 2019Q1

REPORT INFORMATION
  Report Type: Spontaneous
  Country: TR (occurrence: TR)
  Receive Date: 20190314
  Receipt Date: 20190314
  Transmission Date: 20190418
  Serious: Yes (Other)
  Sender: FDA-Public Use
  Company Number: TR-BAUSCH-BL-2019-007565

PATIENT
  Age: 72 Year
  Sex: Male

DRUGS (3)
  1. VIGAMOX [Concomitant]
     Active Substance: MOXIFLOXACIN HYDROCHLORIDE
     Indication: HYPOPYON
     Route: 047
     Dates: start: 201902, end: 201902
  2. BESIVANCE [Suspect]
     Active Substance: BESIFLOXACIN
     Indication: HYPOPYON
     Route: 047
     Dates: start: 201902, end: 201902
  3. TROPAMID [Concomitant]
     Active Substance: TROPICAMIDE
     Indication: HYPOPYON
     Route: 047
     Dates: start: 201902, end: 201902

REACTIONS (4)
  - Intraocular pressure increased [Recovered/Resolved]
  - Vision blurred [Recovered/Resolved]
  - Ocular hyperaemia [Recovered/Resolved]
  - Eye pain [Recovered/Resolved]

NARRATIVE: CASE EVENT DATE: 201902
